FAERS Safety Report 13165755 (Version 1)
Quarter: 2017Q1

REPORT INFORMATION
  Report Type: Spontaneous
  Country: US (occurrence: US)
  Receive Date: 20170126
  Receipt Date: 20170126
  Transmission Date: 20170428
  Serious: Yes (Life-Threatening, Hospitalization)
  Sender: FDA-Public Use
  Company Number: None

PATIENT
  Age: 58 Year
  Sex: Male
  Weight: 88.5 kg

DRUGS (1)
  1. LISINOPRIL. [Suspect]
     Active Substance: LISINOPRIL
     Indication: HYPERTENSION
     Route: 048
     Dates: start: 20111110, end: 20130705

REACTIONS (7)
  - Respiratory distress [None]
  - Angioedema [None]
  - Cardiac arrest [None]
  - Respiratory tract oedema [None]
  - Pneumonia [None]
  - Acute kidney injury [None]
  - Swollen tongue [None]

NARRATIVE: CASE EVENT DATE: 20130705
